FAERS Safety Report 10505764 (Version 2)
Quarter: 2014Q4

REPORT INFORMATION
  Report Type: Spontaneous
  Country: SE (occurrence: SE)
  Receive Date: 20141008
  Receipt Date: 20141107
  Transmission Date: 20150528
  Serious: Yes (Other)
  Sender: FDA-Public Use
  Company Number: PHHY2014SE129717

PATIENT

DRUGS (1)
  1. ENALAPRIL SANDOZ [Suspect]
     Active Substance: ENALAPRIL

REACTIONS (1)
  - Anaphylactic shock [Unknown]
